FAERS Safety Report 13943116 (Version 1)
Quarter: 2017Q3

REPORT INFORMATION
  Report Type: Spontaneous
  Country: US (occurrence: US)
  Receive Date: 20170907
  Receipt Date: 20170907
  Transmission Date: 20171128
  Serious: Yes (Hospitalization)
  Sender: FDA-Public Use
  Company Number: US-PFIZER INC-2017387118

PATIENT
  Age: 20 Year
  Sex: Male

DRUGS (1)
  1. BOSULIF [Suspect]
     Active Substance: BOSUTINIB MONOHYDRATE
     Dosage: 500 MG, UNK

REACTIONS (2)
  - Intentional product misuse [Unknown]
  - White blood cell count abnormal [Unknown]

NARRATIVE: CASE EVENT DATE: 20170905
